FAERS Safety Report 7325895-3 (Version None)
Quarter: 2011Q1

REPORT INFORMATION
  Report Type: 
  Country: None (occurrence: None)
  Receive Date: 20110302
  Receipt Date: 20110218
  Transmission Date: 20110831
  Serious: Yes (Other)
  Sender: FDA-Public Use
  Company Number: US-SANOFI-AVENTIS-2011SA006958

PATIENT
  Age: 78 Year
  Sex: Male
  Weight: 87.72 kg

DRUGS (8)
  1. AVAPRO [Concomitant]
  2. COUMADIN [Concomitant]
  3. ZETIA [Concomitant]
  4. SIMVASTATIN [Concomitant]
     Dosage: 500/20MG DAILY
  5. MULTAQ [Suspect]
     Indication: ATRIAL FIBRILLATION
     Route: 048
     Dates: start: 20100324, end: 20110128
  6. FISH OIL [Concomitant]
  7. MULTAQ [Suspect]
     Route: 048
     Dates: start: 20100324, end: 20110128
  8. METOPROLOL [Concomitant]
     Dosage: ONE HALF OF A 25MG TABLET TWICE DAILY

REACTIONS (2)
  - HEPATOCELLULAR INJURY [None]
  - ATRIAL FIBRILLATION [None]
